FAERS Safety Report 10228380 (Version 1)
Quarter: 2014Q2

REPORT INFORMATION
  Report Type: Spontaneous
  Country: US (occurrence: None)
  Receive Date: 20140505
  Receipt Date: 20140505
  Transmission Date: 20141212
  Serious: No
  Sender: FDA-Public Use
  Company Number: US-015016

PATIENT
  Sex: Female

DRUGS (1)
  1. PICO-SALAX (NOT SPECIFIED) [Suspect]
     Indication: BOWEL PREPARATION
     Dosage: FIRST PACKET: 5:00 PM; SECOND PACKET: 10:00 PM
     Route: 048
     Dates: start: 2014, end: 2014

REACTIONS (3)
  - Chills [None]
  - Nausea [None]
  - Abdominal pain [None]
